FAERS Safety Report 9527068 (Version 1)
Quarter: 2013Q3

REPORT INFORMATION
  Report Type: Spontaneous
  Country: US (occurrence: US)
  Receive Date: 20130916
  Receipt Date: 20130916
  Transmission Date: 20140515
  Serious: Yes (Other)
  Sender: FDA-Public Use
  Company Number: US-ABBVIE-13P-163-1146610-00

PATIENT
  Age: 62 Year
  Sex: Male

DRUGS (5)
  1. TRILIPIX [Suspect]
     Indication: BLOOD CHOLESTEROL INCREASED
     Route: 065
     Dates: start: 2010
  2. MAALOX MAX ANTACID/ANTI-GAS [Suspect]
     Indication: GASTROOESOPHAGEAL REFLUX DISEASE
     Route: 048
     Dates: start: 2006, end: 201208
  3. LISINOPRIL [Suspect]
     Indication: HYPERTENSION
     Route: 065
  4. LOVASTATIN [Suspect]
     Indication: BLOOD CHOLESTEROL INCREASED
     Route: 065
     Dates: start: 2010
  5. NEXIUM [Concomitant]
     Indication: PRODUCT USED FOR UNKNOWN INDICATION
     Dates: start: 201111

REACTIONS (4)
  - Ulcer [Recovered/Resolved]
  - Barrett^s oesophagus [Recovering/Resolving]
  - Gastritis [Recovering/Resolving]
  - Gastrooesophageal reflux disease [Unknown]
